FAERS Safety Report 5802385-8 (Version None)
Quarter: 2008Q3

REPORT INFORMATION
  Report Type: 
  Country: None (occurrence: None)
  Receive Date: 20080707
  Receipt Date: 20080624
  Transmission Date: 20090109
  Serious: Yes (Hospitalization)
  Sender: FDA-Public Use
  Company Number: IL-GENENTECH-262993

PATIENT
  Age: 60 Year
  Sex: Female

DRUGS (16)
  1. BEVACIZUMAB [Suspect]
     Indication: PANCREATIC CARCINOMA METASTATIC
     Dosage: 5 MG/KG, Q2W
     Route: 042
     Dates: start: 20060530, end: 20071107
  2. ERLOTINIB [Suspect]
     Indication: PANCREATIC CARCINOMA METASTATIC
     Dosage: 100 MG, QD
     Route: 048
     Dates: start: 20060530
  3. GEMCITABINE [Suspect]
     Indication: PANCREATIC CARCINOMA METASTATIC
     Dosage: 1530 MG, 1/WEEK
     Route: 042
     Dates: start: 20060530, end: 20080417
  4. AMOXICILLIN AND CLAVULANATE POTASSIUM [Concomitant]
     Indication: ANAL ABSCESS
     Dosage: 875 MG, BID
  5. MICROPIRIN [Concomitant]
  6. INSULIN [Concomitant]
     Dates: start: 19990101
  7. LIPIDAL [Concomitant]
     Dates: start: 19990101
  8. LEVEMIR [Concomitant]
     Dates: start: 19990101
  9. ACTRAPID [Concomitant]
     Dates: start: 19990101
  10. ASPIRIN [Concomitant]
  11. CARTIA (DILTIAZEM HCL) [Concomitant]
  12. SEROXAT [Concomitant]
  13. DIOVAN [Concomitant]
  14. LIPITOR [Concomitant]
  15. ENALADEX [Concomitant]
  16. CENTRUM [Concomitant]

REACTIONS (2)
  - DYSPNOEA [None]
  - MALIGNANT HYPERTENSION [None]
